FAERS Safety Report 20201745 (Version 1)
Quarter: 2021Q4

REPORT INFORMATION
  Report Type: Spontaneous
  Country: US (occurrence: US)
  Receive Date: 20211217
  Receipt Date: 20211217
  Transmission Date: 20220303
  Serious: No
  Sender: FDA-Public Use
  Company Number: US-REGENERON PHARMACEUTICALS, INC.-2021-85111

PATIENT

DRUGS (2)
  1. EYLEA [Suspect]
     Active Substance: AFLIBERCEPT
     Indication: Diabetic eye disease
     Dosage: 2 MG, Q8W, RIGHT EYE
     Route: 031
     Dates: start: 20210517
  2. EYLEA [Suspect]
     Active Substance: AFLIBERCEPT
     Dosage: 2 MG, Q8W, LEFT EYE
     Route: 031
     Dates: start: 202106

REACTIONS (6)
  - Nasal congestion [Unknown]
  - Head discomfort [Unknown]
  - Cough [Unknown]
  - Pain [Unknown]
  - Refusal of treatment by patient [Unknown]
  - Eye pain [Recovered/Resolved]

NARRATIVE: CASE EVENT DATE: 20210101
